FAERS Safety Report 5867447-8 (Version None)
Quarter: 2008Q3

REPORT INFORMATION
  Report Type: 
  Country: None (occurrence: None)
  Receive Date: 20080902
  Receipt Date: 20080902
  Transmission Date: 20090109
  Serious: Yes (Hospitalization)
  Sender: FDA-Public Use
  Company Number: PHEH1996US10617

PATIENT
  Sex: Male
  Weight: 73 kg

DRUGS (10)
  1. SANDIMMUNE [Suspect]
     Dosage: VARIABLE
     Route: 048
     Dates: start: 19951023, end: 19951030
  2. PEPCID [Concomitant]
     Dosage: UNSPECIFIED
     Route: 065
  3. GANCICLOVIR [Concomitant]
     Dosage: UNSPECIFIED
     Route: 065
  4. BACTRIM DS [Concomitant]
     Dosage: UNSPECIFIED
     Route: 065
  5. IMURAN [Concomitant]
     Dosage: UNSPECIFIED
     Route: 065
  6. NYSTATIN [Concomitant]
     Dosage: UNSPECIFIED
     Route: 065
  7. MAGNESIUM SULFATE [Concomitant]
     Dosage: UNSPECIFIED
     Route: 065
  8. PREDNISONE TAB [Concomitant]
     Dosage: UNSPECIFIED
  9. MAALOX [Concomitant]
     Dosage: UNSPECIFIED
  10. BENADRYL [Concomitant]
     Dosage: UNSPECIFIED

REACTIONS (3)
  - LIVER FUNCTION TEST ABNORMAL [None]
  - NAUSEA [None]
  - TRANSPLANT REJECTION [None]
